FAERS Safety Report 5158170-6 (Version None)
Quarter: 2006Q4

REPORT INFORMATION
  Report Type: 
  Country: None (occurrence: None)
  Receive Date: 20061120
  Receipt Date: 20061120
  Transmission Date: 20070319
  Serious: No
  Sender: FDA-Public Use
  Company Number: None

PATIENT
  Age: 2 Year
  Sex: Female
  Weight: 12.2471 kg

DRUGS (1)
  1. LACTULOSE [Suspect]
     Indication: CONSTIPATION
     Dosage: 10GM/15ML  ONE A DAY PO
     Route: 048
     Dates: start: 20061004, end: 20061118

REACTIONS (1)
  - DRUG INEFFECTIVE [None]
